APPROVED DRUG PRODUCT: METHADONE HYDROCHLORIDE
Active Ingredient: METHADONE HYDROCHLORIDE
Strength: 10MG
Dosage Form/Route: TABLET;ORAL
Application: A090065 | Product #002 | TE Code: AA
Applicant: EPIC PHARMA LLC
Approved: Aug 18, 2015 | RLD: No | RS: No | Type: RX